FAERS Safety Report 8211372-4 (Version None)
Quarter: 2012Q1

REPORT INFORMATION
  Report Type: 
  Country: None (occurrence: None)
  Receive Date: 20120315
  Receipt Date: 20120307
  Transmission Date: 20120608
  Serious: Yes (Hospitalization)
  Sender: FDA-Public Use
  Company Number: US-UCBSA-053033

PATIENT
  Age: 37 Year
  Sex: Female
  Weight: 81.2 kg

DRUGS (1)
  1. CIMZIA [Suspect]
     Route: 058

REACTIONS (4)
  - WOUND [None]
  - PAIN IN EXTREMITY [None]
  - COAGULOPATHY [None]
  - FIBROMYALGIA [None]
